FAERS Safety Report 4625691-1 (Version None)
Quarter: 2005Q2

REPORT INFORMATION
  Report Type: 
  Country: None (occurrence: None)
  Receive Date: 20050404
  Receipt Date: 20050323
  Transmission Date: 20051028
  Serious: Yes (Life-Threatening, Hospitalization, Other)
  Sender: FDA-Public Use
  Company Number: US-JNJFOC-20050206007

PATIENT
  Sex: Male
  Weight: 23.59 kg

DRUGS (6)
  1. REMICADE [Suspect]
     Route: 042
  2. PREDNISONE [Concomitant]
     Indication: RHEUMATOID ARTHRITIS
     Dosage: 3 YEARS
  3. METHOTREXATE [Concomitant]
     Dosage: 3 YEARS
  4. FOLIC ACID [Concomitant]
  5. IBUPROFEN [Concomitant]
  6. PAMIDRONATE DISODIUM [Concomitant]

REACTIONS (6)
  - GASTROINTESTINAL HAEMORRHAGE [None]
  - HEPATOMEGALY [None]
  - HISTOPLASMOSIS DISSEMINATED [None]
  - PANCYTOPENIA [None]
  - PNEUMONIA [None]
  - RESPIRATORY FAILURE [None]
